FAERS Safety Report 6946172-6 (Version None)
Quarter: 2010Q3

REPORT INFORMATION
  Report Type: 
  Country: None (occurrence: None)
  Receive Date: 20100827
  Receipt Date: 20100820
  Transmission Date: 20110219
  Serious: Yes (Hospitalization)
  Sender: FDA-Public Use
  Company Number: PHHO2010IT12661

PATIENT
  Sex: Male
  Weight: 68 kg

DRUGS (4)
  1. CERTICAN [Suspect]
     Indication: HEART TRANSPLANT
     Dosage: 10MG/DAY
     Route: 048
     Dates: start: 20100611
  2. NEORAL [Suspect]
     Indication: HEART TRANSPLANT
     Dosage: 175MG/DAY
     Route: 048
     Dates: start: 20100502
  3. FLUVASTATIN G-FLUV+XRTAB [Suspect]
     Indication: HEART TRANSPLANT
     Dosage: 40G/DAY
     Route: 048
     Dates: start: 20100527
  4. PREDNISONE [Concomitant]

REACTIONS (2)
  - ASTHENIA [None]
  - DYSPEPSIA [None]
